FAERS Safety Report 10080080 (Version 4)
Quarter: 2014Q3

REPORT INFORMATION
  Report Type: Report from Study
  Country: NZ (occurrence: NZ)
  Receive Date: 20140415
  Receipt Date: 20140716
  Transmission Date: 20150326
  Serious: Yes (Death, Other)
  Sender: FDA-Public Use
  Company Number: PHHY2014NZ046055

PATIENT
  Age: 50 Year
  Sex: Male

DRUGS (1)
  1. CLOZARIL [Suspect]
     Active Substance: CLOZAPINE
     Dosage: UNK UKN, UNK
     Dates: start: 19931004

REACTIONS (7)
  - Lung neoplasm malignant [Fatal]
  - Dyspnoea [Fatal]
  - Lung cancer metastatic [Unknown]
  - Malaise [Unknown]
  - Neutrophilia [Unknown]
  - Depressed mood [Unknown]
  - White blood cell count increased [Unknown]

NARRATIVE: CASE EVENT DATE: 20061101
